FAERS Safety Report 9671455 (Version 1)
Quarter: 2013Q4

REPORT INFORMATION
  Report Type: Spontaneous
  Country: US (occurrence: None)
  Receive Date: 20131105
  Receipt Date: 20131105
  Transmission Date: 20140711
  Serious: Yes (Disabling)
  Sender: FDA-Public Use
  Company Number: None

PATIENT
  Age: 53 Year
  Sex: Female
  Weight: 77.11 kg

DRUGS (1)
  1. CRESTOR 10MG ASTRAZENECA [Suspect]
     Indication: BLOOD DISORDER
     Route: 048
     Dates: start: 20130512, end: 20130902

REACTIONS (3)
  - Abasia [None]
  - Muscle spasms [None]
  - Bedridden [None]
